FAERS Safety Report 10053443 (Version 2)
Quarter: 2014Q2

REPORT INFORMATION
  Report Type: Spontaneous
  Country: US (occurrence: US)
  Receive Date: 20140402
  Receipt Date: 20140610
  Transmission Date: 20141212
  Serious: Yes (Other)
  Sender: FDA-Public Use
  Company Number: US-BAYER-2014-049898

PATIENT
  Age: 49 Year
  Sex: Female
  Weight: 83.45 kg

DRUGS (11)
  1. BETASERON [Suspect]
     Indication: MULTIPLE SCLEROSIS
     Dosage: 0.5 ML, QOD
     Route: 058
     Dates: start: 2011
  2. BACLOFEN [Concomitant]
     Indication: MUSCLE SPASMS
     Dosage: 10 MG, TID
  3. GABAPENTIN [Concomitant]
     Indication: NEURALGIA
     Dosage: 100 MG, QID
  4. ZOLPIDEM [Concomitant]
     Indication: SLEEP DISORDER
     Dosage: 10 MG, UNK (AT BED TIME))
  5. DIAZEPAM [Concomitant]
     Indication: MUSCLE SPASMS
     Dosage: 10 MG, HS
  6. LASIX [Concomitant]
     Indication: FLUID RETENTION
     Dosage: 40 MG, QD
  7. METOPROLOL [Concomitant]
     Indication: BLOOD PRESSURE MANAGEMENT
     Dosage: 25 MG, BID
  8. LISINOPRIL [Concomitant]
     Indication: BLOOD PRESSURE MANAGEMENT
     Dosage: 20 MG, QD
  9. PANTOPRAZOLE [Concomitant]
     Indication: BLOOD PRESSURE MANAGEMENT
     Dosage: 40 MG, QD
  10. VITAMIN D [COLECALCIFEROL] [Concomitant]
     Indication: VITAMIN D DECREASED
     Dosage: 5000 IU, OW
  11. POTASSIUM CHLORIDE [Concomitant]
     Indication: BLOOD POTASSIUM DECREASED
     Dosage: 20 MEQ, BID

REACTIONS (7)
  - Multiple sclerosis [Not Recovered/Not Resolved]
  - Abasia [Not Recovered/Not Resolved]
  - Dizziness [Not Recovered/Not Resolved]
  - Hypoaesthesia [Not Recovered/Not Resolved]
  - Pain in extremity [Not Recovered/Not Resolved]
  - Hepatic enzyme increased [Not Recovered/Not Resolved]
  - Depression [None]
